FAERS Safety Report 21163757 (Version 1)
Quarter: 2022Q3

REPORT INFORMATION
  Report Type: Spontaneous
  Country: GB (occurrence: GB)
  Receive Date: 20220803
  Receipt Date: 20220803
  Transmission Date: 20221026
  Serious: Yes (Life-Threatening, Hospitalization, Other)
  Sender: FDA-Public Use
  Company Number: GB-GLENMARK PHARMACEUTICALS-2022GMK073761

PATIENT
  Age: 70 Year
  Sex: Male

DRUGS (3)
  1. CAPECITABINE [Suspect]
     Active Substance: CAPECITABINE
     Indication: Colon cancer
     Dosage: CAPECITABINE 500 MILLIGRAM AT DOSE OF 5 FILM-COATED TABLETS TWICE DAILY
     Route: 048
     Dates: end: 20220706
  2. CAPECITABINE [Suspect]
     Active Substance: CAPECITABINE
     Dosage: CAPECITABINE 150 MILLIGRAM AT A DOSE OF 1 FILM-COATED TABLETS TWICE DAILY
     Route: 048
     Dates: end: 20220706
  3. RAMIPRIL [Concomitant]
     Active Substance: RAMIPRIL
     Indication: Product used for unknown indication
     Dosage: UNK (STARTED 15 YEARS PRIOR TO THIS REPORT)
     Route: 065

REACTIONS (2)
  - Obstructive airways disorder [Not Recovered/Not Resolved]
  - Angioedema [Not Recovered/Not Resolved]
